FAERS Safety Report 5632052-5 (Version None)
Quarter: 2008Q1

REPORT INFORMATION
  Report Type: 
  Country: None (occurrence: None)
  Receive Date: 20080220
  Receipt Date: 20080219
  Transmission Date: 20080703
  Serious: Yes (Life-Threatening, Hospitalization)
  Sender: FDA-Public Use
  Company Number: FR-BRISTOL-MYERS SQUIBB COMPANY-13740162

PATIENT
  Age: 81 Year
  Sex: Female

DRUGS (4)
  1. IRBESARTAN AND HYDROCHLOROTHIAZIDE [Suspect]
     Indication: HYPERTENSION
     Route: 048
     Dates: start: 20070125, end: 20070323
  2. TANAKAN [Suspect]
     Indication: DIZZINESS
     Route: 048
  3. LECTIL [Suspect]
     Indication: DIZZINESS
     Route: 048
     Dates: end: 20070329
  4. ALLOPURINOL [Suspect]
     Indication: GOUT
     Route: 048

REACTIONS (5)
  - ASTHENIA [None]
  - BONE MARROW FAILURE [None]
  - DIZZINESS [None]
  - PANCYTOPENIA [None]
  - TEMPERATURE INTOLERANCE [None]
